FAERS Safety Report 24829474 (Version 1)
Quarter: 2025Q1

REPORT INFORMATION
  Report Type: Report from Study
  Country: TW (occurrence: TW)
  Receive Date: 20250110
  Receipt Date: 20250110
  Transmission Date: 20250409
  Serious: Yes (Hospitalization)
  Sender: ABBVIE
  Company Number: TW-ABBVIE-6075091

PATIENT
  Age: 54 Year
  Sex: Male
  Weight: 52 kg

DRUGS (3)
  1. HUMIRA [Suspect]
     Active Substance: ADALIMUMAB
     Indication: Psoriatic arthropathy
     Route: 058
     Dates: start: 20230908
  2. METHOTREXATE SODIUM [Concomitant]
     Active Substance: METHOTREXATE SODIUM
     Indication: Psoriatic arthropathy
     Route: 048
     Dates: start: 20160125
  3. PREDNISOLONE [Concomitant]
     Active Substance: PREDNISOLONE
     Indication: Psoriatic arthropathy
     Dates: start: 20151116, end: 20250105

REACTIONS (2)
  - Pancreatolithiasis [Recovering/Resolving]
  - Abdominal pain [Unknown]

NARRATIVE: CASE EVENT DATE: 20241218
